FAERS Safety Report 17213295 (Version 1)
Quarter: 2019Q4

REPORT INFORMATION
  Report Type: Report from Study
  Country: MX (occurrence: MX)
  Receive Date: 20191230
  Receipt Date: 20191230
  Transmission Date: 20200122
  Serious: Yes (Hospitalization)
  Sender: FDA-Public Use
  Company Number: MX-JNJFOC-20191233291

PATIENT
  Age: 49 Year
  Sex: Female
  Weight: 54 kg

DRUGS (1)
  1. ESKETAMINE [Suspect]
     Active Substance: ESKETAMINE
     Indication: DEPRESSION

REACTIONS (2)
  - Pyelonephritis [Recovering/Resolving]
  - Diabetes mellitus [Recovered/Resolved]

NARRATIVE: CASE EVENT DATE: 20191211
